FAERS Safety Report 9280956 (Version 2)
Quarter: 2013Q2

REPORT INFORMATION
  Report Type: Spontaneous
  Country: GB (occurrence: GB)
  Receive Date: 20130509
  Receipt Date: 20130606
  Transmission Date: 20140414
  Serious: Yes (Hospitalization)
  Sender: FDA-Public Use
  Company Number: GB-NAPPMUNDI-GBR-2013-0013863

PATIENT
  Sex: Female

DRUGS (1)
  1. BUTRANS 5MG TRANSDERMAL PATCH [Suspect]
     Indication: FIBROMYALGIA
     Dosage: 5 MCG, Q1H
     Route: 062

REACTIONS (4)
  - Diverticulitis [Unknown]
  - Drug ineffective [Unknown]
  - Gastrointestinal pain [Unknown]
  - Malaise [Unknown]
